FAERS Safety Report 19729940 (Version 3)
Quarter: 2021Q4

REPORT INFORMATION
  Report Type: Spontaneous
  Country: US (occurrence: US)
  Receive Date: 20210821
  Receipt Date: 20211110
  Transmission Date: 20220303
  Serious: No
  Sender: FDA-Public Use
  Company Number: US-SANOFI-00673967

PATIENT
  Age: 79 Year
  Sex: Male

DRUGS (1)
  1. SOLIQUA 100/33 [Suspect]
     Active Substance: INSULIN GLARGINE\LIXISENATIDE
     Indication: Type 2 diabetes mellitus
     Dosage: 24 IU, QD
     Route: 065

REACTIONS (3)
  - Depressed mood [Unknown]
  - Injection site pain [Unknown]
  - Device operational issue [Unknown]
